FAERS Safety Report 9732284 (Version 1)
Quarter: 2013Q4

REPORT INFORMATION
  Report Type: Spontaneous
  Country: US (occurrence: None)
  Receive Date: 20131204
  Receipt Date: 20131204
  Transmission Date: 20140711
  Serious: Yes (Hospitalization)
  Sender: FDA-Public Use
  Company Number: None

PATIENT
  Age: 50 Year
  Sex: Female

DRUGS (1)
  1. TOPOTECAN [Suspect]
     Indication: OVARIAN CANCER
     Dosage: 4.9MG, WEEKLY FOR 3 WEEKS, IV
     Route: 042
     Dates: start: 20120321, end: 201309

REACTIONS (4)
  - Pancreatitis [None]
  - Myalgia [None]
  - Muscle spasms [None]
  - Rash [None]
